FAERS Safety Report 17717534 (Version 2)
Quarter: 2020Q2

REPORT INFORMATION
  Report Type: Spontaneous
  Country: US (occurrence: US)
  Receive Date: 20200428
  Receipt Date: 20200527
  Transmission Date: 20200714
  Serious: No
  Sender: FDA-Public Use
  Company Number: US-BEH-2020115983

PATIENT
  Sex: Female

DRUGS (11)
  1. FER IN SOL [Concomitant]
  2. CYTRA-2 [Concomitant]
     Active Substance: CITRIC ACID MONOHYDRATE\TRISODIUM CITRATE DIHYDRATE
  3. CIPROFLOXACIN. [Concomitant]
     Active Substance: CIPROFLOXACIN
  4. CULTURELLE KIDS CHEWABLES [Concomitant]
  5. OMEGA 3 [DOCOSAHEXAENOIC ACID;EICOSAPENTAENOIC ACID] [Concomitant]
     Active Substance: DOCONEXENT\ICOSAPENT
     Dosage: 1200 GRAM
  6. PROGRAF [Concomitant]
     Active Substance: TACROLIMUS
     Dosage: 5 MILLIGRAM
  7. PREDNISOLONE. [Concomitant]
     Active Substance: PREDNISOLONE
  8. TACROLIMUS. [Concomitant]
     Active Substance: TACROLIMUS
     Dosage: 0.5 MILLIGRAM
  9. HIZENTRA [Suspect]
     Active Substance: HUMAN IMMUNOGLOBULIN G
     Indication: IRON DEFICIENCY
     Dosage: 5 GRAM, QW
     Route: 058
  10. AMOXICILLIN. [Concomitant]
     Active Substance: AMOXICILLIN
  11. DOCUSATE SODIUM. [Concomitant]
     Active Substance: DOCUSATE SODIUM

REACTIONS (5)
  - Infusion site erythema [Recovered/Resolved]
  - Fatigue [Recovered/Resolved]
  - Product use in unapproved indication [Unknown]
  - Injection site erythema [Recovered/Resolved]
  - No adverse event [Unknown]
